FAERS Safety Report 7221718-1 (Version None)
Quarter: 2011Q1

REPORT INFORMATION
  Report Type: 
  Country: None (occurrence: None)
  Receive Date: 20110112
  Receipt Date: 20110103
  Transmission Date: 20110831
  Serious: Yes (Hospitalization)
  Sender: FDA-Public Use
  Company Number: DE-ROCHE-752400

PATIENT
  Sex: Female
  Weight: 69 kg

DRUGS (3)
  1. BEVACIZUMAB [Suspect]
     Dosage: 6TH CYCLE WAS STARTED ON 18 AUG 2010
     Route: 042
  2. BEVACIZUMAB [Suspect]
     Dosage: THE 8TH CYCLE
     Route: 042
     Dates: start: 20101111
  3. BONDRONAT [Concomitant]
     Dosage: GIVEN ON 11-NOV-2010
     Route: 042

REACTIONS (1)
  - PLEURAL EFFUSION [None]
